FAERS Safety Report 13952369 (Version 1)
Quarter: 2017Q3

REPORT INFORMATION
  Report Type: Spontaneous
  Country: US (occurrence: US)
  Receive Date: 20170911
  Receipt Date: 20170911
  Transmission Date: 20171128
  Serious: No
  Sender: FDA-Public Use
  Company Number: US-TEVA-717340ACC

PATIENT
  Sex: Female
  Weight: 83.99 kg

DRUGS (1)
  1. FENTANYL TRANSDERMAL SYSTEM [Suspect]
     Active Substance: FENTANYL
     Indication: BACK PAIN
     Dosage: 25MCG 5

REACTIONS (4)
  - Application site pruritus [Unknown]
  - Urticaria [Unknown]
  - Application site erythema [Unknown]
  - Application site swelling [Unknown]
